FAERS Safety Report 7461905-0 (Version None)
Quarter: 2011Q2

REPORT INFORMATION
  Report Type: 
  Country: None (occurrence: None)
  Receive Date: 20110506
  Receipt Date: 20110321
  Transmission Date: 20111010
  Serious: Yes (Hospitalization, Other)
  Sender: FDA-Public Use
  Company Number: US-BAYER-200942384NA

PATIENT
  Age: 39 Year
  Sex: Female
  Weight: 201 kg

DRUGS (15)
  1. TRAZODONE [Concomitant]
     Indication: ANXIETY
  2. DIOVAN HCT [Concomitant]
     Indication: HYPERTENSION
     Dosage: UNK
     Dates: start: 20080701
  3. NORTREL 7/7/7 [Concomitant]
  4. PROMETRIUM [Concomitant]
  5. YAZ [Suspect]
     Indication: CONTRACEPTION
     Dosage: UNK
     Dates: start: 20080301, end: 20090101
  6. TRAZODONE [Concomitant]
     Indication: STRESS
     Dosage: UNK UNK, HS
     Dates: start: 20090101
  7. FISH OIL [Concomitant]
     Dosage: UNK UNK, QD
  8. YASMIN [Suspect]
     Indication: PRODUCT USED FOR UNKNOWN INDICATION
     Dosage: UNK
     Dates: start: 20080901, end: 20090201
  9. CITALOPRAM [Concomitant]
     Indication: STRESS
     Dosage: DAILY DOSE 10 MG
  10. CITALOPRAM [Concomitant]
     Indication: ANXIETY
  11. TRAZODONE [Concomitant]
     Indication: SLEEP DISORDER THERAPY
  12. MULTI-VITAMINS [Concomitant]
     Dosage: UNK UNK, QD
  13. YAZ [Suspect]
     Indication: PREMENSTRUAL SYNDROME
  14. PROTONIX [Concomitant]
     Indication: ABDOMINAL PAIN UPPER
  15. NAPROXEN [Concomitant]
     Dosage: UNK UNK, PRN
     Dates: start: 20090101, end: 20090201

REACTIONS (17)
  - VOMITING [None]
  - PAIN [None]
  - GASTROOESOPHAGEAL REFLUX DISEASE [None]
  - EATING DISORDER [None]
  - VAGINAL HAEMORRHAGE [None]
  - MYALGIA [None]
  - PROCEDURAL PAIN [None]
  - DYSPEPSIA [None]
  - NAUSEA [None]
  - CHOLELITHIASIS [None]
  - GALLBLADDER DISORDER [None]
  - DIARRHOEA [None]
  - CHOLECYSTITIS [None]
  - BILIARY COLIC [None]
  - EPICONDYLITIS [None]
  - ABDOMINAL PAIN UPPER [None]
  - ARTHRALGIA [None]
